FAERS Safety Report 6295311-1 (Version None)
Quarter: 2009Q3

REPORT INFORMATION
  Report Type: 
  Country: None (occurrence: None)
  Receive Date: 20090803
  Receipt Date: 20090723
  Transmission Date: 20100115
  Serious: Yes (Death)
  Sender: FDA-Public Use
  Company Number: FR-AVENTIS-200917484GDDC

PATIENT
  Age: 72 Year
  Sex: Male

DRUGS (7)
  1. GRANOCYTE [Suspect]
     Indication: NEUTROPENIA
     Dosage: DOSE: UNK
     Route: 042
     Dates: start: 20080401
  2. TAXOTERE [Suspect]
     Indication: SARCOMA
     Route: 042
     Dates: start: 20080304, end: 20080513
  3. GEMZAR [Suspect]
     Indication: SARCOMA
     Route: 042
     Dates: start: 20080226, end: 20080513
  4. MEDROL [Concomitant]
     Dosage: DOSE: UNK
  5. ZOPHREN                            /00955301/ [Concomitant]
     Dosage: DOSE: UNK
  6. MOTILYO [Concomitant]
     Dosage: DOSE: UNK
  7. DUPHALAC [Concomitant]
     Dosage: DOSE: UNK

REACTIONS (1)
  - INTERSTITIAL LUNG DISEASE [None]
